FAERS Safety Report 6646627-8 (Version None)
Quarter: 2010Q1

REPORT INFORMATION
  Report Type: 
  Country: None (occurrence: None)
  Receive Date: 20100317
  Receipt Date: 20100303
  Transmission Date: 20100710
  Serious: Yes (Hospitalization)
  Sender: FDA-Public Use
  Company Number: US-000056

PATIENT
  Sex: Male
  Weight: 126.5 kg

DRUGS (21)
  1. KUVAN 100 MG [Suspect]
     Indication: PHENYLKETONURIA
     Dosage: (1100 MG QD ORAL)
     Route: 048
     Dates: start: 20100212, end: 20100201
  2. NASONEX [Concomitant]
  3. CALCIUM CARBONATE [Concomitant]
  4. RISPERIDONE [Concomitant]
  5. SIMVASTATIN [Concomitant]
  6. TIMOLOL [Concomitant]
  7. TYLENOL (CAPLET) [Concomitant]
  8. TEGRETOL [Concomitant]
  9. NORMAL SALINE [Concomitant]
  10. MINERIN CREAM [Concomitant]
  11. FAMOTIDINE [Concomitant]
  12. FORTICAL /00371903/ [Concomitant]
  13. NALTREXONE HYDROCHLORIDE [Concomitant]
  14. KAOPECTATE /00139305/ [Concomitant]
  15. MYLANTA /00036701 [Concomitant]
  16. Q-TUSSIN DM /01096401/ [Concomitant]
  17. MICONAZOLE NITRATE [Concomitant]
  18. MILK OF MAGNESIA TAB [Concomitant]
  19. SUDAFED /00076302/ [Concomitant]
  20. SUN BATH PROTECTIVE TANNING LOTION [Concomitant]
  21. TRIPLE ANTIBIOTIC /00038301/ [Concomitant]

REACTIONS (7)
  - ALTERED STATE OF CONSCIOUSNESS [None]
  - CONVULSION [None]
  - DEHYDRATION [None]
  - HYPOTENSION [None]
  - RESPIRATORY RATE INCREASED [None]
  - TACHYCARDIA [None]
  - TREMOR [None]
